FAERS Safety Report 18207765 (Version 2)
Quarter: 2020Q3

REPORT INFORMATION
  Report Type: Spontaneous
  Country: US (occurrence: US)
  Receive Date: 20200828
  Receipt Date: 20200901
  Transmission Date: 20201103
  Serious: No
  Sender: FDA-Public Use
  Company Number: US-PFIZER INC-2020333597

PATIENT
  Age: 57 Year
  Sex: Male
  Weight: 102.06 kg

DRUGS (2)
  1. CABERGOLINE. [Suspect]
     Active Substance: CABERGOLINE
     Indication: HYPERPROLACTINAEMIA
  2. CABERGOLINE. [Suspect]
     Active Substance: CABERGOLINE
     Indication: ADENOMA BENIGN
     Dosage: UNK
     Dates: start: 202002

REACTIONS (5)
  - Daydreaming [Unknown]
  - Disturbance in attention [Unknown]
  - Blood testosterone increased [Unknown]
  - Energy increased [Unknown]
  - Therapeutic response unexpected [Unknown]

NARRATIVE: CASE EVENT DATE: 2020
